FAERS Safety Report 12089899 (Version 3)
Quarter: 2016Q2

REPORT INFORMATION
  Report Type: Report from Study
  Country: GB (occurrence: GB)
  Receive Date: 20160218
  Receipt Date: 20160421
  Transmission Date: 20160815
  Serious: Yes (Other)
  Sender: FDA-Public Use
  Company Number: GB-JNJFOC-20160215733

PATIENT
  Sex: Male

DRUGS (2)
  1. STELARA [Suspect]
     Active Substance: USTEKINUMAB
     Indication: PSORIASIS
     Dosage: ON E SYRINGE ONCE 12 WEEKS
     Route: 058
     Dates: start: 20131028
  2. STELARA [Suspect]
     Active Substance: USTEKINUMAB
     Indication: PSORIASIS
     Dosage: ON E SYRINGE ONCE 12 WEEKS
     Route: 058

REACTIONS (1)
  - Lower respiratory tract infection [Recovered/Resolved]
